FAERS Safety Report 5426042-5 (Version None)
Quarter: 2007Q3

REPORT INFORMATION
  Report Type: 
  Country: None (occurrence: None)
  Receive Date: 20070824
  Receipt Date: 20070824
  Transmission Date: 20080115
  Serious: Yes (Life-Threatening)
  Sender: FDA-Public Use
  Company Number: None

PATIENT
  Age: 84 Year
  Sex: Male

DRUGS (11)
  1. LEVAQUIN [Suspect]
     Indication: MENTAL STATUS CHANGES
     Dosage: 750MG IV
     Route: 042
     Dates: start: 20070716
  2. LEVAQUIN [Suspect]
     Indication: PNEUMONIA ASPIRATION
     Dosage: 750MG IV
     Route: 042
     Dates: start: 20070716
  3. ZOSYN [Concomitant]
  4. ASPIRIN [Concomitant]
  5. LOTENSIN [Concomitant]
  6. CELEXA [Concomitant]
  7. ZEBETA [Concomitant]
  8. METOPROLOL SUCCINATE [Concomitant]
  9. LEVOTHYROXINE SODIUM [Concomitant]
  10. NEXIUM [Concomitant]
  11. FLOMAX [Concomitant]

REACTIONS (2)
  - ELECTROCARDIOGRAM QT PROLONGED [None]
  - INFUSION RELATED REACTION [None]
